FAERS Safety Report 7941714-6 (Version None)
Quarter: 2011Q4

REPORT INFORMATION
  Report Type: 
  Country: None (occurrence: None)
  Receive Date: 20111128
  Receipt Date: 20111128
  Transmission Date: 20120403
  Serious: Yes (Other)
  Sender: FDA-Public Use
  Company Number: None

PATIENT
  Age: 30 Year
  Sex: Female
  Weight: 63.502 kg

DRUGS (1)
  1. NUVARING [Suspect]

REACTIONS (4)
  - NIPPLE PAIN [None]
  - ABDOMINAL DISTENSION [None]
  - FLUID RETENTION [None]
  - WEIGHT INCREASED [None]
